FAERS Safety Report 5887894-8 (Version None)
Quarter: 2008Q3

REPORT INFORMATION
  Report Type: 
  Country: None (occurrence: None)
  Receive Date: 20080918
  Receipt Date: 20080908
  Transmission Date: 20090109
  Serious: Yes (Hospitalization)
  Sender: FDA-Public Use
  Company Number: A0730288A

PATIENT
  Sex: Male
  Weight: 90.9 kg

DRUGS (3)
  1. AVANDIA [Suspect]
     Route: 048
     Dates: start: 20020501, end: 20021001
  2. AVANDIA [Suspect]
     Route: 048
     Dates: start: 20050201, end: 20050901
  3. AVANDAMET [Concomitant]
     Dates: start: 20021201, end: 20050101

REACTIONS (2)
  - ACUTE CORONARY SYNDROME [None]
  - MYOCARDIAL INFARCTION [None]
